FAERS Safety Report 5292452-2 (Version None)
Quarter: 2007Q2

REPORT INFORMATION
  Report Type: 
  Country: None (occurrence: None)
  Receive Date: 20070403
  Receipt Date: 20070326
  Transmission Date: 20071010
  Serious: Yes (Hospitalization, Other)
  Sender: FDA-Public Use
  Company Number: E2090-00201-SPO-JP

PATIENT
  Age: 1 Year
  Sex: Male

DRUGS (5)
  1. ZONISAMIDE [Suspect]
     Indication: EPILEPSY
     Dosage: 60 MG, ORAL
     Route: 048
     Dates: start: 20060821, end: 20061211
  2. DEPAKENE [Suspect]
     Indication: EPILEPSY
     Dosage: SEE IMAGE
     Route: 048
     Dates: start: 20050801, end: 20060821
  3. DEPAKENE [Suspect]
     Indication: EPILEPSY
     Dosage: SEE IMAGE
     Route: 048
     Dates: start: 20061120, end: 20061205
  4. PHENOBARBITAL TAB [Suspect]
     Indication: EPILEPSY
     Dosage: 50 MG, ORAL
     Route: 048
     Dates: start: 20060714, end: 20060816
  5. PREDNISOLONE [Concomitant]

REACTIONS (11)
  - ALOPECIA [None]
  - AUTOIMMUNE THROMBOCYTOPENIA [None]
  - CHEILITIS [None]
  - CONJUNCTIVAL HYPERAEMIA [None]
  - CONVULSION [None]
  - CORONARY ARTERY DILATATION [None]
  - DRUG HYPERSENSITIVITY [None]
  - EOSINOPHIL COUNT INCREASED [None]
  - HUMAN HERPESVIRUS 6 INFECTION [None]
  - LIVER DISORDER [None]
  - SKIN FISSURES [None]
